FAERS Safety Report 19882570 (Version 4)
Quarter: 2022Q3

REPORT INFORMATION
  Report Type: Report from Study
  Country: US (occurrence: US)
  Receive Date: 20210924
  Receipt Date: 20220629
  Transmission Date: 20221027
  Serious: No
  Sender: FDA-Public Use
  Company Number: NVSC2021US217649

PATIENT
  Age: 60 Year
  Sex: Female

DRUGS (2)
  1. ENTRESTO [Suspect]
     Active Substance: SACUBITRIL\VALSARTAN
     Indication: Product used for unknown indication
     Dosage: 1 DF, BID (49/51MG)
     Route: 048
     Dates: start: 20210531
  2. ENTRESTO [Suspect]
     Active Substance: SACUBITRIL\VALSARTAN
     Dosage: 1 DOSAGE FORM, BID(49/51MG)
     Route: 048

REACTIONS (3)
  - Heart rate decreased [Unknown]
  - Arthralgia [Unknown]
  - Hypotension [Unknown]

NARRATIVE: CASE EVENT DATE: 20211024
